FAERS Safety Report 11943038 (Version 1)
Quarter: 2016Q1

REPORT INFORMATION
  Report Type: Spontaneous
  Country: US (occurrence: US)
  Receive Date: 20160125
  Receipt Date: 20160125
  Transmission Date: 20160526
  Serious: Yes (Hospitalization)
  Sender: FDA-Public Use
  Company Number: US-UNITED THERAPEUTICS-UNT-2015-010110

PATIENT
  Age: 64 Year
  Sex: Female
  Weight: 52.15 kg

DRUGS (3)
  1. REMODULIN [Suspect]
     Active Substance: TREPROSTINIL
     Indication: PULMONARY ARTERIAL HYPERTENSION
     Dosage: 0.106 ?G/KG, CONTINUING
     Route: 058
     Dates: start: 20150815
  2. OPSUMIT [Concomitant]
     Active Substance: MACITENTAN
     Indication: PRODUCT USED FOR UNKNOWN INDICATION
     Dosage: UNK
     Dates: end: 20150807
  3. REMODULIN [Suspect]
     Active Substance: TREPROSTINIL
     Dosage: 0.118 ?G/KG, CONTINUING
     Route: 058

REACTIONS (15)
  - Infusion site oedema [Unknown]
  - Pain in extremity [Unknown]
  - Dizziness [Unknown]
  - Urinary incontinence [Unknown]
  - Dyspnoea [Unknown]
  - Pulmonary arterial hypertension [Unknown]
  - Asthenia [Unknown]
  - Abdominal pain upper [Recovered/Resolved]
  - Infusion site pain [Unknown]
  - Pain in jaw [Unknown]
  - Night sweats [Unknown]
  - Hyperhidrosis [Recovered/Resolved]
  - Malaise [Recovered/Resolved]
  - Vomiting [Unknown]
  - Cold sweat [Recovered/Resolved]

NARRATIVE: CASE EVENT DATE: 201508
